FAERS Safety Report 7905190-1 (Version None)
Quarter: 2011Q4

REPORT INFORMATION
  Report Type: 
  Country: None (occurrence: None)
  Receive Date: 20111109
  Receipt Date: 20111027
  Transmission Date: 20120403
  Serious: No
  Sender: FDA-Public Use
  Company Number: US-B.I. PHARMACEUTICALS,INC./RIDGEFIELD-2011-BP-22142BP

PATIENT
  Sex: Female

DRUGS (8)
  1. PRADAXA [Suspect]
     Indication: ATRIAL FLUTTER
     Dosage: 150 MG
     Route: 048
     Dates: start: 20110601
  2. ASPIRIN [Concomitant]
     Indication: ATRIAL FLUTTER
     Dosage: 81 MG
     Route: 048
  3. SYNTHROID [Concomitant]
     Indication: HYPOTHYROIDISM
     Dosage: 0.125 MG
     Route: 048
  4. CALCIUM CITRATE [Concomitant]
     Indication: ROUTINE HEALTH MAINTENANCE
     Route: 048
  5. PRADAXA [Suspect]
     Indication: ATRIAL FIBRILLATION
  6. CARTIA XT [Concomitant]
     Indication: HYPERTENSION
     Route: 048
  7. HIGH BLOOD PRESSURE MEDICATION [Concomitant]
     Indication: HYPERTENSION
     Route: 048
  8. WOMEN'S VITAMIN [Concomitant]
     Indication: ROUTINE HEALTH MAINTENANCE
     Route: 048

REACTIONS (3)
  - FATIGUE [None]
  - CONSTIPATION [None]
  - CONTUSION [None]
